FAERS Safety Report 4454030-4 (Version None)
Quarter: 2004Q3

REPORT INFORMATION
  Report Type: 
  Country: None (occurrence: None)
  Receive Date: 20040826
  Receipt Date: 20040611
  Transmission Date: 20050211
  Serious: No
  Sender: FDA-Public Use
  Company Number: WAES 0402USA00921

PATIENT
  Age: 57 Year
  Sex: Female
  Weight: 108.8633 kg

DRUGS (11)
  1. ZETIA [Suspect]
     Indication: BLOOD CHOLESTEROL INCREASED
     Dosage: 10 MG, DAILY, PO
     Route: 048
     Dates: start: 20031101, end: 20040101
  2. CLARITIN [Concomitant]
  3. GLUCOPHAGE [Concomitant]
  4. ZETIA [Suspect]
     Indication: BLOOD CHOLESTEROL INCREASED
     Dosage: 10 MG, DAILY, PO
     Route: 048
     Dates: start: 20040430
  5. NASACORT [Concomitant]
  6. VANCERIL [Concomitant]
  7. WELCHOL [Concomitant]
  8. CALCIUM CARBONATE (+) VITAMIN D [Concomitant]
  9. SENNA [Concomitant]
  10. VERAPAMIL HYDROCHLORIDE [Concomitant]
  11. VITAMINS (UNSPECIFIED) [Concomitant]

REACTIONS (10)
  - ATRIAL FIBRILLATION [None]
  - DIZZINESS [None]
  - DRUG INTERACTION INHIBITION [None]
  - DYSPEPSIA [None]
  - DYSPNOEA [None]
  - FATIGUE [None]
  - MUSCLE CRAMP [None]
  - MUSCLE SPASMS [None]
  - RESTLESS LEGS SYNDROME [None]
  - RHINORRHOEA [None]
